FAERS Safety Report 15094376 (Version 1)
Quarter: 2018Q2

REPORT INFORMATION
  Report Type: Spontaneous
  Country: US (occurrence: US)
  Receive Date: 20180630
  Receipt Date: 20180630
  Transmission Date: 20180711
  Serious: Yes (Hospitalization)
  Sender: FDA-Public Use
  Company Number: US-JNJFOC-20100301417

PATIENT
  Sex: Male
  Weight: 90.72 kg

DRUGS (12)
  1. HALOPERIDOL DECANOATE. [Suspect]
     Active Substance: HALOPERIDOL DECANOATE
     Indication: AFFECTIVE DISORDER
     Route: 030
     Dates: start: 1999, end: 2000
  2. CLOZARIL [Concomitant]
     Active Substance: CLOZAPINE
     Route: 065
  3. HALOPERIDOL DECANOATE. [Suspect]
     Active Substance: HALOPERIDOL DECANOATE
     Indication: AFFECTIVE DISORDER
     Route: 030
     Dates: start: 2010
  4. SEROQUEL [Concomitant]
     Active Substance: QUETIAPINE FUMARATE
     Route: 065
  5. COGENTIN [Concomitant]
     Active Substance: BENZTROPINE MESYLATE
     Route: 065
  6. HALOPERIDOL DECANOATE. [Suspect]
     Active Substance: HALOPERIDOL DECANOATE
     Indication: AFFECTIVE DISORDER
     Route: 030
     Dates: start: 2009, end: 2009
  7. HALOPERIDOL DECANOATE. [Suspect]
     Active Substance: HALOPERIDOL DECANOATE
     Indication: AFFECTIVE DISORDER
     Route: 030
     Dates: start: 2009, end: 2010
  8. VITAMINE D [Concomitant]
     Route: 065
  9. DEPAKOTE [Concomitant]
     Active Substance: DIVALPROEX SODIUM
     Route: 065
  10. ASPIRIN. [Concomitant]
     Active Substance: ASPIRIN
     Route: 065
  11. ATIVAN [Concomitant]
     Active Substance: LORAZEPAM
     Route: 065
  12. ZOCOR [Concomitant]
     Active Substance: SIMVASTATIN
     Route: 065

REACTIONS (16)
  - Frustration tolerance decreased [Unknown]
  - Tremor [Not Recovered/Not Resolved]
  - Drug effect decreased [Recovered/Resolved]
  - Weight decreased [Not Recovered/Not Resolved]
  - Malaise [Unknown]
  - Social avoidant behaviour [Unknown]
  - Impulsive behaviour [Unknown]
  - Tooth loss [Unknown]
  - Dyskinesia [Not Recovered/Not Resolved]
  - Parkinsonism [Recovered/Resolved]
  - Fatigue [Recovered/Resolved]
  - Amnesia [Unknown]
  - Muscle twitching [Not Recovered/Not Resolved]
  - Drug ineffective [Recovered/Resolved]
  - Overdose [Not Recovered/Not Resolved]
  - Sedation complication [Unknown]

NARRATIVE: CASE EVENT DATE: 2010
